FAERS Safety Report 21370451 (Version 1)
Quarter: 2022Q3

REPORT INFORMATION
  Report Type: Report from Study
  Country: DE (occurrence: DE)
  Receive Date: 20220923
  Receipt Date: 20220923
  Transmission Date: 20221027
  Serious: Yes (Death)
  Sender: FDA-Public Use
  Company Number: DE-ROCHE-1901165

PATIENT
  Age: 70 Year
  Sex: Male

DRUGS (11)
  1. METHOTREXATE [Suspect]
     Active Substance: METHOTREXATE
     Indication: Rheumatoid arthritis
     Dosage: MTX 10.0
     Route: 065
     Dates: start: 20151030
  2. METHOTREXATE [Suspect]
     Active Substance: METHOTREXATE
     Dosage: MTX 10,0
     Route: 065
     Dates: start: 20160503
  3. METHOTREXATE [Suspect]
     Active Substance: METHOTREXATE
     Dosage: MTX 7,5
     Route: 065
     Dates: start: 20170724
  4. METHOTREXATE [Suspect]
     Active Substance: METHOTREXATE
     Dosage: MTX
     Route: 065
     Dates: start: 20180122
  5. METHOTREXATE [Suspect]
     Active Substance: METHOTREXATE
     Dosage: MTX 7,5
     Route: 065
     Dates: start: 20180423
  6. OLUMIANT [Suspect]
     Active Substance: BARICITINIB
     Indication: Rheumatoid arthritis
     Dosage: 4 MILLIGRAM
     Route: 065
     Dates: start: 201807
  7. TOCILIZUMAB [Suspect]
     Active Substance: TOCILIZUMAB
     Indication: Rheumatoid arthritis
     Dosage: 162 MILLIGRAM
     Route: 065
     Dates: start: 20150518
  8. TOCILIZUMAB [Suspect]
     Active Substance: TOCILIZUMAB
     Dosage: 162 MILLIGRAM
     Route: 065
     Dates: start: 20150817
  9. TOCILIZUMAB [Suspect]
     Active Substance: TOCILIZUMAB
     Dosage: 720 MILLIGRAM
     Route: 065
     Dates: start: 20151030
  10. TOCILIZUMAB [Suspect]
     Active Substance: TOCILIZUMAB
     Dosage: 710 MILLIGRAM
     Route: 065
     Dates: start: 20160503
  11. TOCILIZUMAB [Suspect]
     Active Substance: TOCILIZUMAB
     Dosage: 750 MILLIGRAM
     Route: 065
     Dates: start: 20170724

REACTIONS (2)
  - Death [Fatal]
  - Nausea [Unknown]

NARRATIVE: CASE EVENT DATE: 20160303
